FAERS Safety Report 18388236 (Version 1)
Quarter: 2020Q4

REPORT INFORMATION
  Report Type: Spontaneous
  Country: US (occurrence: US)
  Receive Date: 20201015
  Receipt Date: 20201015
  Transmission Date: 20210114
  Serious: Yes (Hospitalization, Other)
  Sender: FDA-Public Use
  Company Number: US-SHIRE-US202029995

PATIENT
  Age: 57 Year
  Sex: Male
  Weight: 87.08 kg

DRUGS (4)
  1. GATTEX [Suspect]
     Active Substance: TEDUGLUTIDE\WATER
     Indication: SHORT-BOWEL SYNDROME
     Dosage: 0.38 MILLILITER, 1X/DAY:QD
     Route: 058
     Dates: start: 20190513
  2. GATTEX [Suspect]
     Active Substance: TEDUGLUTIDE\WATER
     Indication: SHORT-BOWEL SYNDROME
     Dosage: 0.38 MILLILITER, 1X/DAY:QD
     Route: 058
     Dates: start: 20190513
  3. GATTEX [Suspect]
     Active Substance: TEDUGLUTIDE\WATER
     Indication: SHORT-BOWEL SYNDROME
     Dosage: 0.38 MILLILITER, 1X/DAY:QD
     Route: 058
     Dates: start: 20190513
  4. GATTEX [Suspect]
     Active Substance: TEDUGLUTIDE\WATER
     Indication: SHORT-BOWEL SYNDROME
     Dosage: 0.38 MILLILITER, 1X/DAY:QD
     Route: 058
     Dates: start: 20190513

REACTIONS (2)
  - Product packaging quantity issue [Unknown]
  - Escherichia infection [Recovering/Resolving]

NARRATIVE: CASE EVENT DATE: 20200924
